FAERS Safety Report 7910203-7 (Version None)
Quarter: 2011Q4

REPORT INFORMATION
  Report Type: 
  Country: None (occurrence: None)
  Receive Date: 20111111
  Receipt Date: 20111102
  Transmission Date: 20120403
  Serious: Yes (Hospitalization)
  Sender: FDA-Public Use
  Company Number: PHHY2011PT96678

PATIENT
  Age: 50 Year
  Sex: Male

DRUGS (5)
  1. PREDNISONE TAB [Suspect]
     Dosage: 2.5 MG ID
  2. TACROLIMUS [Suspect]
     Dosage: 01 MG ID
  3. CLOPIDOGREL [Concomitant]
     Dosage: UNK UKN, UNK
  4. MYCOPHENOLATE MOFETIL [Suspect]
     Dosage: 1.5 MG ID
  5. MYCOPHENOLATE MOFETIL [Suspect]
     Dosage: 1 G, QD

REACTIONS (7)
  - MUCOSAL EROSION [None]
  - DIARRHOEA HAEMORRHAGIC [None]
  - CROHN'S DISEASE [None]
  - OEDEMA MUCOSAL [None]
  - ILEAL FISTULA [None]
  - ABDOMINAL PAIN [None]
  - MUCOSAL ULCERATION [None]
